FAERS Safety Report 13288658 (Version 2)
Quarter: 2017Q2

REPORT INFORMATION
  Report Type: Report from Study
  Country: None (occurrence: BE)
  Receive Date: 20170302
  Receipt Date: 20170405
  Transmission Date: 20170830
  Serious: Yes (Hospitalization, Congenital Anomaly)
  Sender: FDA-Public Use
  Company Number: BE-ABBVIE-17P-013-1893057-00

PATIENT
  Age: 33 Year
  Sex: Female
  Weight: 54.5 kg

DRUGS (1)
  1. HUMIRA [Suspect]
     Active Substance: ADALIMUMAB
     Indication: CROHN^S DISEASE
     Route: 058
     Dates: start: 2010

REACTIONS (5)
  - Pain [Recovered/Resolved]
  - Subileus [Unknown]
  - Crohn^s disease [Unknown]
  - Large intestinal stenosis [Unknown]
  - Vomiting [Unknown]

NARRATIVE: CASE EVENT DATE: 20161102
